FAERS Safety Report 9880765 (Version 3)
Quarter: 2014Q2

REPORT INFORMATION
  Report Type: Spontaneous
  Country: US (occurrence: US)
  Receive Date: 20140207
  Receipt Date: 20140520
  Transmission Date: 20141212
  Serious: No
  Sender: FDA-Public Use
  Company Number: US-PFIZER INC-2014033606

PATIENT
  Age: 63 Year
  Sex: Female
  Weight: 52.6 kg

DRUGS (6)
  1. SUTENT [Suspect]
     Indication: NEOPLASM
     Dosage: 25 MG, CYCLIC (1 WEEK ON 2-3WEEKS OFF )
     Dates: end: 20140429
  2. SUTENT [Suspect]
     Dosage: 37.5 MG, UNK
     Dates: start: 20070101, end: 20121101
  3. SUTENT [Suspect]
     Dosage: UNK
     Dates: end: 20140429
  4. VITAMIN D [Concomitant]
     Dosage: UNK, WEEKLY
  5. VANCOMYCIN [Concomitant]
     Dosage: UNK
  6. THYROID [Concomitant]
     Dosage: UNK

REACTIONS (3)
  - Rash [Not Recovered/Not Resolved]
  - Diarrhoea [Unknown]
  - Pain [Unknown]
